FAERS Safety Report 7074054-0 (Version None)
Quarter: 2010Q4

REPORT INFORMATION
  Report Type: 
  Country: None (occurrence: None)
  Receive Date: 20101029
  Receipt Date: 20101020
  Transmission Date: 20110411
  Serious: Yes (Hospitalization)
  Sender: FDA-Public Use
  Company Number: CA-JNJFOC-20101006353

PATIENT
  Sex: Male
  Weight: 77.2 kg

DRUGS (7)
  1. REMICADE [Suspect]
     Indication: CROHN'S DISEASE
     Dosage: 17TH DOSE
     Route: 042
  2. REMICADE [Suspect]
     Route: 042
  3. VITAMIN D [Concomitant]
  4. EFFEXOR [Concomitant]
  5. TYLENOL W/ CODEINE [Concomitant]
  6. CALCIUM [Concomitant]
  7. METFORMIN [Concomitant]

REACTIONS (1)
  - NEPHROLITHIASIS [None]
